FAERS Safety Report 9460373 (Version 1)
Quarter: 2013Q3

REPORT INFORMATION
  Report Type: Spontaneous
  Country: US (occurrence: US)
  Receive Date: 20130815
  Receipt Date: 20130815
  Transmission Date: 20140515
  Serious: Yes (Other)
  Sender: FDA-Public Use
  Company Number: US-TEVA-425711USA

PATIENT
  Age: 22 Year
  Sex: Female

DRUGS (1)
  1. JOLESSA [Suspect]
     Indication: CONTRACEPTION

REACTIONS (2)
  - Deep vein thrombosis [Unknown]
  - Sepsis [Unknown]
